FAERS Safety Report 13884102 (Version 4)
Quarter: 2018Q2

REPORT INFORMATION
  Report Type: Report from Study
  Country: CA (occurrence: CA)
  Receive Date: 20170821
  Receipt Date: 20180412
  Transmission Date: 20180711
  Serious: Yes (Other)
  Sender: FDA-Public Use
  Company Number: CA-BRISTOL-MYERS SQUIBB COMPANY-BMS-2017-056467

PATIENT
  Age: 56 Year
  Sex: Female

DRUGS (1)
  1. ABATACEPT [Suspect]
     Active Substance: ABATACEPT
     Indication: RHEUMATOID ARTHRITIS
     Dosage: 1000 MG, Q4WK
     Route: 042
     Dates: start: 20151112

REACTIONS (10)
  - Hepatic steatosis [Unknown]
  - Liver function test abnormal [Unknown]
  - Type 2 diabetes mellitus [Unknown]
  - Drug ineffective [Unknown]
  - Hepatomegaly [Unknown]
  - Carpal tunnel syndrome [Unknown]
  - Blood pressure increased [Unknown]
  - Fatigue [Unknown]
  - Abdominal distension [Unknown]
  - Depression [Unknown]

NARRATIVE: CASE EVENT DATE: 20170619
